FAERS Safety Report 4394479-1 (Version None)
Quarter: 2004Q3

REPORT INFORMATION
  Report Type: 
  Country: None (occurrence: None)
  Receive Date: 20040707
  Receipt Date: 20040621
  Transmission Date: 20050211
  Serious: Yes (Other)
  Sender: FDA-Public Use
  Company Number: 198743

PATIENT
  Sex: Female

DRUGS (4)
  1. AVONEX [Suspect]
     Indication: MULTIPLE SCLEROSIS
     Dosage: 30 MCG QW IM
     Route: 030
     Dates: start: 20030818
  2. PROTONIX [Concomitant]
  3. LIPITOR [Concomitant]
  4. ESTROGEN [Concomitant]

REACTIONS (3)
  - BLINDNESS TRANSIENT [None]
  - OPTIC NEURITIS [None]
  - PITUITARY TUMOUR BENIGN [None]
